FAERS Safety Report 8383609-2 (Version None)
Quarter: 2012Q1

REPORT INFORMATION
  Report Type: 
  Country: None (occurrence: None)
  Receive Date: 20120323
  Receipt Date: 20110830
  Transmission Date: 20120608
  Serious: Yes (Other)
  Sender: FDA-Public Use
  Company Number: 163-21880-11032368

PATIENT
  Age: 73 Year
  Sex: Male
  Weight: 95.4 kg

DRUGS (3)
  1. REVLIMID [Suspect]
  2. REVLIMID [Suspect]
     Indication: MULTIPLE MYELOMA
     Dosage: 25 MG, DAILY FOR 14 DAYS, PO 15 MG, 1 IN 1 D, PO 15MG ALTERNATING WITH 25MG DAILY X 14 DAYS, PO
     Route: 048
     Dates: start: 20110126, end: 20110101
  3. REVLIMID [Suspect]
     Indication: MULTIPLE MYELOMA
     Dosage: 25 MG, DAILY FOR 14 DAYS, PO 15 MG, 1 IN 1 D, PO 15MG ALTERNATING WITH 25MG DAILY X 14 DAYS, PO
     Route: 048
     Dates: start: 20110301

REACTIONS (2)
  - NEUTROPHIL COUNT DECREASED [None]
  - LEUKOPENIA [None]
